FAERS Safety Report 23482022 (Version 1)
Quarter: 2024Q1

REPORT INFORMATION
  Report Type: Spontaneous
  Country: US (occurrence: None)
  Receive Date: 20240203
  Receipt Date: 20240203
  Transmission Date: 20240410
  Serious: Yes (Other)
  Sender: FDA-Public Use
  Company Number: None

PATIENT
  Age: 41 Year
  Sex: Male
  Weight: 135 kg

DRUGS (1)
  1. BASIC CARE NO DRIP NASAL [Suspect]
     Active Substance: OXYMETAZOLINE HYDROCHLORIDE
     Indication: Sinus congestion
     Dosage: OTHER QUANTITY : 30 SPRAY(S);?FREQUENCY : 4 TIMES A DAY;?
     Route: 055
     Dates: start: 20240101, end: 20240201

REACTIONS (2)
  - Sinusitis [None]
  - Product formulation issue [None]

NARRATIVE: CASE EVENT DATE: 20240124
